FAERS Safety Report 25251121 (Version 1)
Quarter: 2025Q2

REPORT INFORMATION
  Report Type: Spontaneous
  Country: LT (occurrence: LT)
  Receive Date: 20250429
  Receipt Date: 20250429
  Transmission Date: 20250716
  Serious: Yes (Life-Threatening)
  Sender: MYLAN
  Company Number: LT-POLPHARMA-PPH6901606

PATIENT
  Age: 55 Year
  Sex: Male

DRUGS (1)
  1. ADRENALIN [Suspect]
     Active Substance: EPINEPHRINE
     Indication: Upper gastrointestinal haemorrhage

REACTIONS (1)
  - Drug ineffective [Unknown]
